FAERS Safety Report 8022263-6 (Version None)
Quarter: 2012Q1

REPORT INFORMATION
  Report Type: 
  Country: None (occurrence: None)
  Receive Date: 20120104
  Receipt Date: 20111228
  Transmission Date: 20120608
  Serious: Yes (Hospitalization)
  Sender: FDA-Public Use
  Company Number: RU-GENZYME-CAMP-1002015

PATIENT
  Sex: Female
  Weight: 65 kg

DRUGS (2)
  1. ALEMTUZUMAB [Suspect]
     Dosage: 24 MG, QD
     Route: 042
     Dates: start: 20081104, end: 20081108
  2. ALEMTUZUMAB [Suspect]
     Indication: MULTIPLE SCLEROSIS
     Dosage: 24 MG, QD
     Route: 042
     Dates: start: 20091111, end: 20091113

REACTIONS (1)
  - BASEDOW'S DISEASE [None]
